FAERS Safety Report 4356912-0 (Version None)
Quarter: 2004Q2

REPORT INFORMATION
  Report Type: 
  Country: None (occurrence: None)
  Receive Date: 20040507
  Receipt Date: 20040423
  Transmission Date: 20050107
  Serious: Yes (Other)
  Sender: FDA-Public Use
  Company Number: 2003-06232

PATIENT
  Sex: 0

DRUGS (5)
  1. VIREAD [Suspect]
     Indication: HIV INFECTION
     Dosage: 300 MG
  2. DDI (DIDANOSINE) [Suspect]
     Indication: HIV INFECTION
  3. ABACAVIR (ABACAVIR) [Suspect]
     Indication: HIV INFECTION
  4. NEVIRAPINE (NEVIRAPINE) [Suspect]
     Indication: HIV INFECTION
  5. LOPINAVIR (LOPINAVIR) [Suspect]
     Indication: HIV INFECTION

REACTIONS (1)
  - HYPERLACTACIDAEMIA [None]
